FAERS Safety Report 13037765 (Version 2)
Quarter: 2016Q4

REPORT INFORMATION
  Report Type: Spontaneous
  Country: JP (occurrence: JP)
  Receive Date: 20161217
  Receipt Date: 20161225
  Transmission Date: 20170207
  Serious: Yes (Death)
  Sender: FDA-Public Use
  Company Number: JP-ASTRAZENECA-2016SF32703

PATIENT
  Age: 80 Year
  Sex: Female

DRUGS (2)
  1. QUETIAPINE. [Suspect]
     Active Substance: QUETIAPINE
     Indication: NEUROPSYCHIATRIC SYMPTOMS
     Dosage: GENERIC, 12.5MG UNKNOWN
     Route: 065
     Dates: start: 20160130
  2. ARICEPT [Concomitant]
     Active Substance: DONEPEZIL HYDROCHLORIDE
     Indication: NEUROPSYCHIATRIC SYMPTOMS
     Dosage: 5.0MG UNKNOWN
     Route: 065
     Dates: start: 20160130

REACTIONS (3)
  - Off label use [Unknown]
  - Product use issue [Unknown]
  - Hypoglycaemia [Fatal]

NARRATIVE: CASE EVENT DATE: 201603
